APPROVED DRUG PRODUCT: CYPROHEPTADINE HYDROCHLORIDE
Active Ingredient: CYPROHEPTADINE HYDROCHLORIDE
Strength: 4MG
Dosage Form/Route: TABLET;ORAL
Application: A207783 | Product #001
Applicant: RISING PHARMA HOLDINGS INC
Approved: Dec 29, 2016 | RLD: No | RS: No | Type: DISCN